FAERS Safety Report 4562230-8 (Version None)
Quarter: 2005Q1

REPORT INFORMATION
  Report Type: 
  Country: None (occurrence: None)
  Receive Date: 20050124
  Receipt Date: 20050111
  Transmission Date: 20050727
  Serious: Yes (Other)
  Sender: FDA-Public Use
  Company Number: 211615

PATIENT
  Age: 51 Year
  Sex: Female

DRUGS (4)
  1. RITUXAN [Suspect]
     Indication: NON-HODGKIN'S LYMPHOMA
     Dosage: 375 MG/M2, 1/WEEK, INTRAVENOUS
     Route: 042
     Dates: start: 20040101
  2. ACYCLOVIR [Concomitant]
  3. SEPTRA DS (TRIMETHOPRIM, SULFAMETHOXAZOLE) [Concomitant]
  4. ZOMETA [Concomitant]

REACTIONS (1)
  - NEUTROPENIA [None]
